FAERS Safety Report 9671205 (Version 2)
Quarter: 2013Q4

REPORT INFORMATION
  Report Type: Spontaneous
  Country: DE (occurrence: DE)
  Receive Date: 20131106
  Receipt Date: 20131204
  Transmission Date: 20140711
  Serious: Yes (Other)
  Sender: FDA-Public Use
  Company Number: DE-NOVOPROD-391059

PATIENT
  Age: 89 Year
  Sex: Male

DRUGS (1)
  1. NOVOMIX? 30 FLEXPEN? [Suspect]
     Indication: PRODUCT USED FOR UNKNOWN INDICATION
     Dosage: UNK
     Route: 065

REACTIONS (3)
  - Palpitations [Unknown]
  - Fatigue [Unknown]
  - Hyperglycaemia [Unknown]
